FAERS Safety Report 4772806-0 (Version None)
Quarter: 2005Q3

REPORT INFORMATION
  Report Type: 
  Country: None (occurrence: None)
  Receive Date: 20050915
  Receipt Date: 20050915
  Transmission Date: 20060218
  Serious: Yes (Hospitalization)
  Sender: FDA-Public Use
  Company Number: None

PATIENT
  Age: 67 Year
  Sex: Male
  Weight: 80 kg

DRUGS (17)
  1. AMIODARONE HCL [Suspect]
     Indication: ARRHYTHMIA
     Dosage: 200 MG PO DAILY
     Route: 048
  2. ASPIRIN [Concomitant]
  3. BUMEX [Concomitant]
  4. COLACE [Concomitant]
  5. COUMADIN [Concomitant]
  6. DIGOXIN [Concomitant]
  7. ELIGARD [Concomitant]
  8. POTASSIUM CHLORIDE [Concomitant]
  9. MAGNESIUM [Concomitant]
  10. MEVACOR [Concomitant]
  11. OXYCONTIN [Concomitant]
  12. PREDNISONE [Concomitant]
  13. SENOKOT [Concomitant]
  14. ZOMETA [Concomitant]
  15. ALTACE [Concomitant]
  16. ALLOPURINOL [Concomitant]
  17. UNTREIL [Concomitant]

REACTIONS (6)
  - DYSPNOEA [None]
  - HYPOXIA [None]
  - INTERSTITIAL LUNG DISEASE [None]
  - OEDEMA PERIPHERAL [None]
  - PULMONARY TOXICITY [None]
  - RESPIRATORY DISORDER [None]
